FAERS Safety Report 9156333 (Version 1)
Quarter: 2013Q1

REPORT INFORMATION
  Report Type: Spontaneous
  Country: US (occurrence: US)
  Receive Date: 20130312
  Receipt Date: 20130312
  Transmission Date: 20140127
  Serious: No
  Sender: FDA-Public Use
  Company Number: US-009507513-1303USA004310

PATIENT
  Age: 31 Year
  Sex: Female
  Weight: 62.59 kg

DRUGS (1)
  1. FOLLISTIM AQ [Suspect]
     Indication: ASSISTED FERTILISATION
     Dosage: 37.5 IU, QD
     Route: 059
     Dates: start: 20130301

REACTIONS (1)
  - Dyspepsia [Unknown]
